FAERS Safety Report 13958949 (Version 5)
Quarter: 2017Q4

REPORT INFORMATION
  Report Type: Spontaneous
  Country: JP (occurrence: JP)
  Receive Date: 20170911
  Receipt Date: 20171016
  Transmission Date: 20180320
  Serious: Yes (Hospitalization, Other)
  Sender: FDA-Public Use
  Company Number: JP-PFIZER INC-2017390489

PATIENT
  Age: 92 Year
  Sex: Female
  Weight: 46 kg

DRUGS (6)
  1. OLMESARTAN [Suspect]
     Active Substance: OLMESARTAN
     Indication: BLOOD PRESSURE MANAGEMENT
     Dosage: 20 MG, UNK (20MG WAS ADDED FOR FURTHER LOWERING OF BLOOD PRESSURE ON DAY 16)
     Route: 048
  2. AMLODIPINE BESILATE [Concomitant]
     Active Substance: AMLODIPINE BESYLATE
     Dosage: 10 MG, (10MG ON DAY 18)
     Route: 048
  3. CARVEDILOL 2.5 MG PFIZER [Suspect]
     Active Substance: CARVEDILOL
     Dosage: 2.5 MG, (2.5MG WAS STARTED ON DAY 11)
     Route: 048
  4. AZILSARTAN [Suspect]
     Active Substance: AZILSARTAN KAMEDOXOMIL
     Dosage: 40 MG, UNK (40MG WAS ADDED ON DAY 7)
     Route: 048
  5. IRBETAN [Suspect]
     Active Substance: IRBESARTAN
     Dosage: 200 MG, QD (200MG HAD BEEN STARTED BEFORE DAY 1)
     Route: 048
  6. AMLODIPINE BESILATE [Concomitant]
     Active Substance: AMLODIPINE BESYLATE
     Dosage: 5 MG, QD (5MG HAD BEEN STARTED BEFORE DAY 1)
     Route: 048

REACTIONS (3)
  - Bradycardia [Unknown]
  - Hyperkalaemia [Unknown]
  - Cardiac arrest [Unknown]
